FAERS Safety Report 4677492-6 (Version None)
Quarter: 2005Q2

REPORT INFORMATION
  Report Type: 
  Country: None (occurrence: None)
  Receive Date: 20050527
  Receipt Date: 20050527
  Transmission Date: 20051028
  Serious: Yes (Hospitalization)
  Sender: FDA-Public Use
  Company Number: None

PATIENT
  Sex: Female
  Weight: 90.7194 kg

DRUGS (1)
  1. LEVAQUIN [Suspect]
     Indication: HYPERSENSITIVITY
     Dosage: ORAL
     Route: 048

REACTIONS (10)
  - ANXIETY [None]
  - CRYING [None]
  - EYELID FUNCTION DISORDER [None]
  - FEELING HOT AND COLD [None]
  - MALAISE [None]
  - MOVEMENT DISORDER [None]
  - OPIATES POSITIVE [None]
  - PANIC ATTACK [None]
  - SCREAMING [None]
  - SENSATION OF HEAVINESS [None]
